FAERS Safety Report 7323681-1 (Version None)
Quarter: 2011Q1

REPORT INFORMATION
  Report Type: 
  Country: None (occurrence: None)
  Receive Date: 20110301
  Receipt Date: 20100712
  Transmission Date: 20110831
  Serious: Yes (Other)
  Sender: FDA-Public Use
  Company Number: US-BAYER-200934505NA

PATIENT
  Sex: Female
  Weight: 53.515 kg

DRUGS (11)
  1. UNCODEABLE ^UNCLASSIFIABLE^ [Concomitant]
     Dosage: UNK
     Dates: start: 20090101
  2. LAMICTAL [Concomitant]
     Indication: ANXIETY
  3. ZYPREXA [Concomitant]
     Indication: MOOD SWINGS
     Dosage: UNK
     Dates: start: 20090101
  4. YASMIN [Suspect]
     Indication: PRODUCT USED FOR UNKNOWN INDICATION
  5. CYMBALTA [Concomitant]
     Indication: DEPRESSION
     Dosage: UNK
     Dates: start: 20100101
  6. YAZ [Suspect]
     Indication: PREMENSTRUAL SYNDROME
     Dosage: UNK
     Dates: start: 20080801, end: 20090101
  7. LAMICTAL [Concomitant]
     Indication: MOOD SWINGS
     Dosage: UNK
     Dates: start: 20090101
  8. ZYPREXA [Concomitant]
     Indication: ANXIETY
  9. IBUPROFEN [Concomitant]
  10. ALEVE [Concomitant]
  11. LEXAPRO [Concomitant]
     Indication: HORMONE LEVEL ABNORMAL
     Dosage: UNK
     Dates: start: 20080101, end: 20090101

REACTIONS (5)
  - CHOLECYSTITIS CHRONIC [None]
  - BILIARY DYSKINESIA [None]
  - ABDOMINAL PAIN UPPER [None]
  - PULMONARY EMBOLISM [None]
  - GALLBLADDER PAIN [None]
